FAERS Safety Report 7089831-X (Version None)
Quarter: 2010Q4

REPORT INFORMATION
  Report Type: 
  Country: None (occurrence: None)
  Receive Date: 20101108
  Receipt Date: 20101026
  Transmission Date: 20110411
  Serious: Yes (Hospitalization)
  Sender: FDA-Public Use
  Company Number: PHHY2010US61844

PATIENT
  Sex: Male

DRUGS (6)
  1. RECLAST [Suspect]
     Indication: OSTEOPOROSIS
     Dosage: 5 MG
     Route: 042
     Dates: start: 20100915
  2. ALBUTEROL [Concomitant]
     Dosage: UNK
  3. COLACE [Concomitant]
     Dosage: UNK
  4. PREVACID [Concomitant]
     Dosage: UNK
  5. PULMICORT [Concomitant]
     Dosage: UNK
  6. POTASSIUM SUPPLEMENTS [Concomitant]

REACTIONS (6)
  - ACIDOSIS [None]
  - BLOOD POTASSIUM DECREASED [None]
  - DRUG ADMINISTRATION ERROR [None]
  - PYREXIA [None]
  - TACHYCARDIA [None]
  - WHITE BLOOD CELL COUNT INCREASED [None]
